FAERS Safety Report 9268017 (Version 3)
Quarter: 2014Q3

REPORT INFORMATION
  Report Type: Report from Study
  Country: US (occurrence: US)
  Receive Date: 20130502
  Receipt Date: 20140903
  Transmission Date: 20150326
  Serious: Yes (Other)
  Sender: FDA-Public Use
  Company Number: US-ALEXION-A201201571

PATIENT
  Age: 46 Year
  Sex: Female

DRUGS (1)
  1. SOLIRIS [Suspect]
     Active Substance: ECULIZUMAB
     Indication: HAEMOLYTIC URAEMIC SYNDROME
     Dosage: UNK
     Route: 042
     Dates: start: 20120606, end: 20120725

REACTIONS (9)
  - Drug ineffective [Unknown]
  - Activities of daily living impaired [Unknown]
  - Dialysis [Not Recovered/Not Resolved]
  - Catheter removal [Unknown]
  - Fatigue [Not Recovered/Not Resolved]
  - Muscle spasms [Recovered/Resolved]
  - Depressed mood [Unknown]
  - Nausea [Not Recovered/Not Resolved]
  - Trismus [Recovered/Resolved]

NARRATIVE: CASE EVENT DATE: 201208
